FAERS Safety Report 7467473-1 (Version None)
Quarter: 2011Q2

REPORT INFORMATION
  Report Type: 
  Country: None (occurrence: None)
  Receive Date: 20110509
  Receipt Date: 20110506
  Transmission Date: 20111010
  Serious: Yes (Other)
  Sender: FDA-Public Use
  Company Number: NO-PFIZER INC-2011098452

PATIENT
  Age: 65 Year
  Sex: Male

DRUGS (1)
  1. VARENICLINE TARTRATE [Suspect]
     Indication: SMOKING CESSATION THERAPY
     Dosage: 1.5 MG (0.5MG IN THE MORNING AND 1MG IN THE EVENING)
     Route: 048
     Dates: start: 20110402, end: 20110409

REACTIONS (7)
  - SENSATION OF HEAVINESS [None]
  - LIP SWELLING [None]
  - EYELID OEDEMA [None]
  - URTICARIA [None]
  - DYSPHAGIA [None]
  - HYPERSENSITIVITY [None]
  - OROPHARYNGEAL PAIN [None]
